FAERS Safety Report 8770999 (Version 1)
Quarter: 2012Q4

REPORT INFORMATION
  Report Type: 
  Country: CO (occurrence: CO)
  Receive Date: 20120906
  Receipt Date: 20120906
  Transmission Date: 20130627
  Serious: Yes (Other)
  Sender: FDA-Public Use
  Company Number: CO-PFIZER INC-2012216430

PATIENT
  Age: 63 Year
  Sex: Female

DRUGS (6)
  1. LYRICA [Suspect]
     Indication: HEADACHE
     Dosage: 75 mg, 1x/day
     Route: 048
     Dates: start: 2007
  2. LYRICA [Suspect]
     Indication: PAIN
  3. NEBILET [Concomitant]
     Indication: HYPERTENSION
     Dosage: 2 tablets at 5 mg, 1x/day
     Route: 048
     Dates: start: 2006
  4. FOLIC ACID [Concomitant]
     Dosage: UNK
     Route: 065
  5. COMPLEJO B [Concomitant]
     Dosage: UNK
     Route: 065
  6. DOLEX [Concomitant]
     Route: 065

REACTIONS (4)
  - Drug dependence [Unknown]
  - Arthritis [Recovering/Resolving]
  - Pruritus generalised [Recovered/Resolved]
  - Off label use [Unknown]
